FAERS Safety Report 7353293-5 (Version None)
Quarter: 2011Q1

REPORT INFORMATION
  Report Type: 
  Country: None (occurrence: None)
  Receive Date: 20110315
  Receipt Date: 20110302
  Transmission Date: 20110831
  Serious: Yes (Hospitalization)
  Sender: FDA-Public Use
  Company Number: US-ACTELION-A-US2011-45853

PATIENT

DRUGS (1)
  1. TRACLEER [Suspect]
     Indication: PULMONARY ARTERIAL HYPERTENSION
     Dosage: UNK
     Route: 048
     Dates: start: 20110211

REACTIONS (5)
  - OEDEMA [None]
  - DYSPNOEA [None]
  - FATIGUE [None]
  - PULMONARY ARTERIAL HYPERTENSION [None]
  - CHEST PAIN [None]
